FAERS Safety Report 8304475-7 (Version None)
Quarter: 2012Q2

REPORT INFORMATION
  Report Type: 
  Country: None (occurrence: None)
  Receive Date: 20120423
  Receipt Date: 20120416
  Transmission Date: 20120825
  Serious: Yes (Hospitalization)
  Sender: FDA-Public Use
  Company Number: US-JNJFOC-20120405528

PATIENT

DRUGS (1)
  1. CALCIUM CARBONATE [Suspect]
     Indication: MINERAL SUPPLEMENTATION
     Dosage: PRESCRIBED A 3 WEEK TAPERING COURSE POSTOPERATIVELY.
     Route: 065

REACTIONS (1)
  - HYPOCALCAEMIA [None]
